FAERS Safety Report 8782151 (Version 4)
Quarter: 2012Q4

REPORT INFORMATION
  Report Type: 
  Country: CO (occurrence: CO)
  Receive Date: 20120913
  Receipt Date: 20121219
  Transmission Date: 20130627
  Serious: Yes (Hospitalization, Other)
  Sender: FDA-Public Use
  Company Number: CO-AMGEN-COLSP2012057600

PATIENT
  Age: 64 Year
  Sex: Female

DRUGS (12)
  1. ENBREL [Suspect]
     Indication: RHEUMATOID ARTHRITIS
     Dosage: 50 mg, weekly
     Route: 058
     Dates: start: 2008, end: 20120729
  2. ENBREL [Suspect]
     Dosage: 50 mg, weekly
     Route: 058
     Dates: start: 20120923
  3. VOLTAREN                           /00372302/ [Concomitant]
     Indication: RHEUMATOID ARTHRITIS
     Dosage: 10 mg, 1x/day
     Route: 048
  4. OMEPRAZOL                          /00661201/ [Concomitant]
     Indication: RHEUMATOID ARTHRITIS
     Dosage: 40 mg, 1x/day
     Route: 048
     Dates: start: 1994
  5. DEFLAZACORT [Concomitant]
     Indication: RHEUMATOID ARTHRITIS
     Dosage: 5 mg, 1x/day
     Route: 048
     Dates: start: 2008
  6. DEFLAZACORT [Concomitant]
     Indication: SWELLING
  7. METHOTREXATE [Concomitant]
     Indication: RHEUMATOID ARTHRITIS
     Dosage: 3 tablets of 2.5 mg each 8 days
     Route: 048
     Dates: start: 2008
  8. METHOTREXATE [Concomitant]
     Dosage: 3 tablets each 8 days
     Route: 048
     Dates: start: 2009
  9. FOLIC ACID [Concomitant]
     Indication: RHEUMATOID ARTHRITIS
     Dosage: 1 tablet each 8 days
     Route: 048
     Dates: start: 2009
  10. BIO CALCIUM [Concomitant]
     Indication: RHEUMATOID ARTHRITIS
     Dosage: UNK
     Route: 047
  11. OMEGA                              /01454401/ [Concomitant]
     Indication: RHEUMATOID ARTHRITIS
     Dosage: 1 tablet, 1x/day
     Route: 048
  12. DICLOFENAC [Concomitant]
     Dosage: UNK

REACTIONS (10)
  - Cartilage injury [Recovered/Resolved]
  - Hypertension [Recovered/Resolved]
  - Blood glucose increased [Recovered/Resolved]
  - Headache [Recovered/Resolved]
  - Stress [Recovered/Resolved]
  - Carpal tunnel syndrome [Recovered/Resolved]
  - Arthropathy [Recovered/Resolved]
  - Irritable bowel syndrome [Recovered/Resolved]
  - Hepatic steatosis [Recovered/Resolved]
  - Influenza [Recovered/Resolved]
